FAERS Safety Report 4500982-3 (Version None)
Quarter: 2004Q4

REPORT INFORMATION
  Report Type: 
  Country: None (occurrence: None)
  Receive Date: 20041115
  Receipt Date: 20040816
  Transmission Date: 20050328
  Serious: Yes (Other)
  Sender: FDA-Public Use
  Company Number: US-MERCK-0408USA01341

PATIENT
  Age: 61 Year
  Sex: Female

DRUGS (8)
  1. VIOXX [Suspect]
     Route: 048
     Dates: end: 20040701
  2. ZOLOFT [Suspect]
     Indication: DEPRESSION
     Route: 048
     Dates: end: 20040701
  3. TOPAMAX [Suspect]
     Route: 065
     Dates: end: 20040701
  4. LEXAPRO [Suspect]
     Indication: DEPRESSION
     Route: 048
     Dates: end: 20040701
  5. LEXAPRO [Suspect]
     Route: 048
     Dates: start: 20031101
  6. ZOCOR [Concomitant]
     Route: 048
  7. NEXIUM [Concomitant]
     Route: 065
  8. MIRAPEX [Concomitant]
     Route: 065

REACTIONS (2)
  - MOUTH ULCERATION [None]
  - TONGUE ULCERATION [None]
